FAERS Safety Report 10445084 (Version 1)
Quarter: 2014Q3

REPORT INFORMATION
  Report Type: Spontaneous
  Country: US (occurrence: US)
  Receive Date: 20140910
  Receipt Date: 20140910
  Transmission Date: 20150326
  Serious: No
  Sender: FDA-Public Use
  Company Number: US-PFIZER INC-2014250472

PATIENT
  Age: 57 Year
  Sex: Male
  Weight: 125 kg

DRUGS (2)
  1. CELEBREX [Suspect]
     Active Substance: CELECOXIB
     Dosage: 200 MG, 2X/DAY
     Route: 048
     Dates: start: 20140905
  2. CELEBREX [Suspect]
     Active Substance: CELECOXIB
     Dosage: 400 MG, 1X/DAY (IN NIGHT)
     Route: 048
     Dates: start: 20140904, end: 20140905

REACTIONS (1)
  - Drug ineffective [Unknown]

NARRATIVE: CASE EVENT DATE: 20140904
